FAERS Safety Report 22343863 (Version 2)
Quarter: 2023Q2

REPORT INFORMATION
  Report Type: Report from Study
  Country: MX (occurrence: MX)
  Receive Date: 20230519
  Receipt Date: 20230605
  Transmission Date: 20230721
  Serious: Yes (Death, Other)
  Sender: FDA-Public Use
  Company Number: MX-002147023-NVSC2023MX115133

PATIENT
  Age: 78 Year
  Sex: Male

DRUGS (1)
  1. EXELON [Suspect]
     Active Substance: RIVASTIGMINE TARTRATE
     Indication: Product used for unknown indication
     Dosage: 13.3 MG, QD PATCH 15 (CM2) (EXTENDED RELEASE) (PARCHE 15)
     Route: 062
     Dates: start: 20211101, end: 20230201

REACTIONS (2)
  - Death [Fatal]
  - Mesenteric vein thrombosis [Fatal]

NARRATIVE: CASE EVENT DATE: 20230201
